FAERS Safety Report 9203335 (Version 1)
Quarter: 2013Q1

REPORT INFORMATION
  Report Type: Spontaneous
  Country: GB (occurrence: None)
  Receive Date: 20130328
  Receipt Date: 20130328
  Transmission Date: 20140127
  Serious: Yes (Other)
  Sender: FDA-Public Use
  Company Number: 2013-05365

PATIENT
  Age: 52 Year
  Sex: Female

DRUGS (1)
  1. TRAMADOL HYDROCHLORIDE (TRAMADOL HYDROCHLORIDE) [Suspect]
     Indication: PRODUCT USED FOR UNKNOWN INDICATION
     Route: 042
     Dates: start: 20130305, end: 20130305

REACTIONS (3)
  - Hot flush [None]
  - Dizziness [None]
  - Tachypnoea [None]
